FAERS Safety Report 23807902 (Version 1)
Quarter: 2024Q2

REPORT INFORMATION
  Report Type: Spontaneous
  Country: US (occurrence: US)
  Receive Date: 20240502
  Receipt Date: 20240502
  Transmission Date: 20240715
  Serious: No
  Sender: FDA-Public Use
  Company Number: US-PHARMING-PHAUS2024000034

PATIENT

DRUGS (4)
  1. RUCONEST [Suspect]
     Active Substance: CONESTAT ALFA
     Indication: Immunodeficiency
     Dosage: 4200 IU, PRN
  2. RUCONEST [Suspect]
     Active Substance: CONESTAT ALFA
     Indication: Hereditary angioedema
     Dosage: 4200 IU, ONCE WEEKLY IN CONJUNCTION WITH WEEKLY IVIG INFUSIONS
     Route: 042
  3. RUCONEST [Suspect]
     Active Substance: CONESTAT ALFA
     Dosage: 4200 IU, ONCE WEEKLY IN CONJUNCTION WITH WEEKLY IVIG INFUSIONS
     Route: 042
     Dates: start: 202006
  4. EPINEPHRINE [Concomitant]
     Active Substance: EPINEPHRINE
     Indication: Product used for unknown indication

REACTIONS (2)
  - Intentional product use issue [Unknown]
  - Product use in unapproved indication [Unknown]
